FAERS Safety Report 9178172 (Version 2)
Quarter: 2012Q4

REPORT INFORMATION
  Report Type: Report from Study
  Country: CH (occurrence: FR)
  Receive Date: 20121026
  Receipt Date: 20121114
  Transmission Date: 20130627
  Serious: Yes (Hospitalization)
  Sender: FDA-Public Use
  Company Number: FR-BIOMARINP-003148

PATIENT
  Age: 22 None
  Sex: Male
  Weight: 62 kg

DRUGS (1)
  1. KUVAN [Suspect]
     Indication: PRODUCT USED FOR UNKNOWN INDICATION
     Dates: start: 20090910

REACTIONS (1)
  - Grand mal convulsion [Recovered/Resolved]
